FAERS Safety Report 21370965 (Version 1)
Quarter: 2022Q3

REPORT INFORMATION
  Report Type: Report from Study
  Country: US (occurrence: US)
  Receive Date: 20220923
  Receipt Date: 20220923
  Transmission Date: 20221027
  Serious: Yes (Death, Hospitalization, Disabling, Other)
  Sender: FDA-Public Use
  Company Number: US-GLAXOSMITHKLINE-US2022089039

PATIENT

DRUGS (1)
  1. BELANTAMAB MAFODOTIN [Suspect]
     Active Substance: BELANTAMAB MAFODOTIN
     Indication: Plasma cell myeloma
     Dosage: 138 MG, QD
     Route: 042
     Dates: start: 20211006, end: 20211006

REACTIONS (3)
  - Disease complication [Fatal]
  - Fall [Not Recovered/Not Resolved]
  - Spinal fracture [Unknown]

NARRATIVE: CASE EVENT DATE: 20210101
